FAERS Safety Report 6418921-7 (Version None)
Quarter: 2009Q4

REPORT INFORMATION
  Report Type: 
  Country: None (occurrence: None)
  Receive Date: 20091029
  Receipt Date: 20091023
  Transmission Date: 20100525
  Serious: Yes (Death)
  Sender: FDA-Public Use
  Company Number: CH-WYE-G04701709

PATIENT
  Age: 26 Year
  Sex: Male
  Weight: 71 kg

DRUGS (1)
  1. EFFEXOR [Suspect]
     Dosage: SINCE SEVERAL MONTHS, 75MG DAILY
     Route: 048

REACTIONS (1)
  - SUDDEN DEATH [None]
